FAERS Safety Report 15933080 (Version 3)
Quarter: 2020Q2

REPORT INFORMATION
  Report Type: Spontaneous
  Country: US (occurrence: US)
  Receive Date: 20190207
  Receipt Date: 20200427
  Transmission Date: 20200713
  Serious: No
  Sender: FDA-Public Use
  Company Number: US-KYOWAKIRIN-2018BKK011244

PATIENT

DRUGS (2)
  1. FERROUS SULFATE. [Concomitant]
     Active Substance: FERROUS SULFATE
     Indication: PRODUCT USED FOR UNKNOWN INDICATION
     Dosage: 325 MG/D
     Route: 048
  2. CRYSVITA [Suspect]
     Active Substance: BUROSUMAB-TWZA
     Indication: HEREDITARY HYPOPHOSPHATAEMIC RICKETS
     Dosage: 60 MG (1MG/KG), EVERY 2 WEEKS
     Route: 058
     Dates: start: 20181107

REACTIONS (3)
  - Blood 25-hydroxycholecalciferol decreased [Unknown]
  - Product use in unapproved indication [Not Recovered/Not Resolved]
  - Blood 1,25-dihydroxycholecalciferol increased [Unknown]

NARRATIVE: CASE EVENT DATE: 20181107
